FAERS Safety Report 10764159 (Version 2)
Quarter: 2015Q3

REPORT INFORMATION
  Report Type: Report from Study
  Country: CA (occurrence: CA)
  Receive Date: 20150204
  Receipt Date: 20150709
  Transmission Date: 20151125
  Serious: Yes (Other)
  Sender: FDA-Public Use
  Company Number: CA-ROCHE-1238268

PATIENT
  Age: 60 Year
  Sex: Male
  Weight: 86 kg

DRUGS (13)
  1. ASAPHEN [Concomitant]
     Active Substance: ASPIRIN
     Route: 065
     Dates: start: 201403
  2. ACTEMRA [Suspect]
     Active Substance: TOCILIZUMAB
     Indication: RHEUMATOID ARTHRITIS
     Dosage: 8 MG/KG
     Route: 042
     Dates: start: 20130128
  3. METHOTREXATE [Concomitant]
     Active Substance: METHOTREXATE
     Dosage: SATURDAY
     Route: 048
  4. HYDROXYCHLOROQUINE [Concomitant]
     Active Substance: HYDROXYCHLOROQUINE
  5. FOLIC ACID. [Concomitant]
     Active Substance: FOLIC ACID
     Dosage: EVERY SUNDAY
     Route: 048
  6. CRESTOR [Concomitant]
     Active Substance: ROSUVASTATIN CALCIUM
     Dosage: EVERY NIGHT
     Route: 065
     Dates: start: 201403
  7. ACTEMRA [Suspect]
     Active Substance: TOCILIZUMAB
     Route: 042
     Dates: start: 20131202
  8. ACTEMRA [Suspect]
     Active Substance: TOCILIZUMAB
     Route: 042
     Dates: start: 20131104
  9. BISOPROLOL [Concomitant]
     Active Substance: BISOPROLOL
     Dosage: 5 MG IS EQUAL TO 1/4 TABLET
     Route: 065
     Dates: start: 201403
  10. ACTEMRA [Suspect]
     Active Substance: TOCILIZUMAB
     Route: 042
     Dates: start: 20131230
  11. CELEBREX [Concomitant]
     Active Substance: CELECOXIB
     Route: 048
  12. ISOSORBIDE-5-MONONITRATE [Concomitant]
     Route: 065
  13. ACTEMRA [Suspect]
     Active Substance: TOCILIZUMAB
     Route: 042
     Dates: start: 20131007

REACTIONS (8)
  - Hypertension [Unknown]
  - Vein collapse [Recovered/Resolved]
  - Blood pressure systolic increased [Recovered/Resolved]
  - Infusion related reaction [Unknown]
  - Cardiac disorder [Unknown]
  - Poor venous access [Unknown]
  - Angina pectoris [Unknown]
  - Coronary artery occlusion [Unknown]

NARRATIVE: CASE EVENT DATE: 20130617
